FAERS Safety Report 4594381-6 (Version None)
Quarter: 2005Q1

REPORT INFORMATION
  Report Type: 
  Country: None (occurrence: None)
  Receive Date: 20050301
  Receipt Date: 20041214
  Transmission Date: 20050727
  Serious: No
  Sender: FDA-Public Use
  Company Number: US-GLAXOSMITHKLINE-A0537267A

PATIENT
  Age: 50 Year
  Sex: Male

DRUGS (1)
  1. VALTREX [Suspect]
     Dosage: 2G TWICE PER DAY
     Route: 048
     Dates: start: 20041213, end: 20041214

REACTIONS (1)
  - DRUG INEFFECTIVE [None]
